FAERS Safety Report 7938508-4 (Version None)
Quarter: 2011Q4

REPORT INFORMATION
  Report Type: 
  Country: None (occurrence: None)
  Receive Date: 20111123
  Receipt Date: 20111109
  Transmission Date: 20120403
  Serious: Yes (Hospitalization)
  Sender: FDA-Public Use
  Company Number: US-ROCHE-1012045

PATIENT
  Sex: Female
  Weight: 114.9 kg

DRUGS (1)
  1. MABTHERA [Suspect]
     Indication: RHEUMATOID ARTHRITIS
     Dosage: LAST DOSE PRIOR TO SAE 5-NOV-2010
     Route: 042
     Dates: start: 20071114

REACTIONS (2)
  - SKIN ULCER [None]
  - SKIN NECROSIS [None]
